FAERS Safety Report 11533102 (Version 2)
Quarter: 2015Q3

REPORT INFORMATION
  Report Type: Spontaneous
  Country: ES (occurrence: ES)
  Receive Date: 20150921
  Receipt Date: 20150922
  Transmission Date: 20151125
  Serious: Yes (Other)
  Sender: FDA-Public Use
  Company Number: ES-UCBSA-2015029150

PATIENT
  Age: 74 Year
  Sex: Female
  Weight: 68 kg

DRUGS (3)
  1. REMICADE [Interacting]
     Active Substance: INFLIXIMAB
     Indication: OSTEOARTHRITIS
     Dosage: 300 MG, EV 2 MONTHS
     Route: 042
     Dates: start: 20130404, end: 20131004
  2. CIMZIA [Suspect]
     Active Substance: CERTOLIZUMAB PEGOL
     Indication: OSTEOARTHRITIS
     Dosage: 200 MG, EV 2 WEEKS(QOW)
     Route: 058
     Dates: start: 20131030, end: 201402
  3. METHOTREXATE (METHOTREXATE SODIUM) [Interacting]
     Active Substance: METHOTREXATE SODIUM
     Indication: OSTEOARTHRITIS
     Dosage: 2.5 MG, 3X/DAY (TID)
     Route: 048
     Dates: start: 1989, end: 20150306

REACTIONS (3)
  - Diffuse large B-cell lymphoma stage II [Unknown]
  - Drug interaction [Unknown]
  - Off label use [Unknown]

NARRATIVE: CASE EVENT DATE: 20131030
